FAERS Safety Report 7669193-7 (Version None)
Quarter: 2011Q3

REPORT INFORMATION
  Report Type: 
  Country: None (occurrence: None)
  Receive Date: 20110808
  Receipt Date: 20110729
  Transmission Date: 20111222
  Serious: Yes (Hospitalization)
  Sender: FDA-Public Use
  Company Number: PHFR2011GB04517

PATIENT
  Sex: Female

DRUGS (1)
  1. CLOZAPINE [Suspect]
     Indication: SCHIZOPHRENIA
     Route: 048
     Dates: start: 20110714

REACTIONS (6)
  - EAR INFECTION [None]
  - SEPSIS [None]
  - TACHYCARDIA [None]
  - ABDOMINAL DISTENSION [None]
  - VOMITING [None]
  - PYREXIA [None]
